FAERS Safety Report 8770191 (Version 1)
Quarter: 2012Q4

REPORT INFORMATION
  Report Type: 
  Country: DE (occurrence: DE)
  Receive Date: 20120906
  Receipt Date: 20120906
  Transmission Date: 20130627
  Serious: Yes (Other)
  Sender: FDA-Public Use
  Company Number: DE-BRISTOL-MYERS SQUIBB COMPANY-16755126

PATIENT
  Age: 61 Year
  Sex: Female
  Weight: 81 kg

DRUGS (4)
  1. KARVEA [Suspect]
     Indication: HYPERTENSION
     Dosage: Jun2004-May2011: 150 mg, tabs
     Route: 048
     Dates: start: 201102, end: 201205
  2. AZITHROMYCIN [Suspect]
     Indication: SALPINGO-OOPHORITIS
     Dates: start: 201103
  3. PRAJMALIUM BITARTRATE [Concomitant]
     Indication: ARRHYTHMIA
     Dosage: tabs
     Dates: start: 1989
  4. LEVOTHYROXIN [Concomitant]
     Indication: TOXIC NODULAR GOITRE
     Dosage: tabs
     Dates: start: 1989

REACTIONS (2)
  - Gastrointestinal infection [Recovered/Resolved with Sequelae]
  - Salpingo-oophoritis [Unknown]
